FAERS Safety Report 13845928 (Version 1)
Quarter: 2017Q3

REPORT INFORMATION
  Report Type: Spontaneous
  Country: US (occurrence: US)
  Receive Date: 20170808
  Receipt Date: 20170808
  Transmission Date: 20171127
  Serious: No
  Sender: FDA-Public Use
  Company Number: US-ROCHE-460391

PATIENT
  Age: 79 Year
  Sex: Female
  Weight: 48.2 kg

DRUGS (7)
  1. HYDROXYZINE [Concomitant]
     Active Substance: HYDROXYZINE HYDROCHLORIDE
     Route: 065
  2. AMITIZA [Concomitant]
     Active Substance: LUBIPROSTONE
     Dosage: DRUG: AMITIZE.
     Route: 065
  3. FOSAMAX [Suspect]
     Active Substance: ALENDRONATE SODIUM
     Indication: PRODUCT USED FOR UNKNOWN INDICATION
     Route: 065
  4. CALCIUM [Concomitant]
     Active Substance: CALCIUM
     Route: 065
  5. PROZAC [Concomitant]
     Active Substance: FLUOXETINE HYDROCHLORIDE
     Route: 065
  6. BONIVA [Suspect]
     Active Substance: IBANDRONATE SODIUM
     Indication: OSTEOPOROSIS
     Dosage: THERAPY START DATE: 2 WEEKS.
     Route: 048
  7. BABY ASA [Concomitant]
     Active Substance: ASPIRIN
     Route: 065

REACTIONS (5)
  - Alopecia [Unknown]
  - Rash [Unknown]
  - Back pain [Unknown]
  - Arthralgia [Unknown]
  - Oral herpes [Unknown]

NARRATIVE: CASE EVENT DATE: 20060820
